FAERS Safety Report 23202619 (Version 3)
Quarter: 2025Q1

REPORT INFORMATION
  Report Type: Spontaneous
  Country: IR (occurrence: IR)
  Receive Date: 20231120
  Receipt Date: 20250130
  Transmission Date: 20250408
  Serious: Yes (Death, Life-Threatening, Hospitalization, Other)
  Sender: STRIDES
  Company Number: None

PATIENT
  Age: 50 Year
  Sex: Female

DRUGS (10)
  1. MYCOPHENOLATE MOFETIL [Suspect]
     Active Substance: MYCOPHENOLATE MOFETIL
     Indication: Immunosuppressant drug therapy
     Route: 065
     Dates: start: 2022, end: 2022
  2. MYCOPHENOLATE MOFETIL [Suspect]
     Active Substance: MYCOPHENOLATE MOFETIL
     Indication: Liver transplant
     Route: 065
     Dates: start: 2022
  3. PREDNISOLONE [Suspect]
     Active Substance: PREDNISOLONE
     Indication: Immunosuppressant drug therapy
     Route: 065
     Dates: start: 2022, end: 2022
  4. PREDNISOLONE [Suspect]
     Active Substance: PREDNISOLONE
     Indication: Liver transplant
     Route: 065
     Dates: start: 2022
  5. TACROLIMUS [Suspect]
     Active Substance: TACROLIMUS
     Indication: Immunosuppressant drug therapy
     Route: 065
     Dates: start: 2022, end: 2022
  6. TACROLIMUS [Suspect]
     Active Substance: TACROLIMUS
     Indication: Liver transplant
     Route: 065
     Dates: start: 2022
  7. METHYLPREDNISOLONE [Suspect]
     Active Substance: METHYLPREDNISOLONE
     Indication: Immunosuppressant drug therapy
     Route: 065
     Dates: start: 2022, end: 2022
  8. METHYLPREDNISOLONE [Suspect]
     Active Substance: METHYLPREDNISOLONE
     Indication: Liver transplant
  9. HEPATITIS B IMMUNE GLOBULIN [Concomitant]
     Active Substance: HUMAN HEPATITIS B VIRUS IMMUNE GLOBULIN
     Indication: Hepatitis B
     Route: 065
  10. TENOFOVIR DISOPROXIL FUMARATE [Concomitant]
     Active Substance: TENOFOVIR DISOPROXIL FUMARATE
     Indication: Hepatitis B
     Route: 065

REACTIONS (3)
  - Acute myelomonocytic leukaemia [Fatal]
  - Septic shock [Fatal]
  - Sepsis [Fatal]

NARRATIVE: CASE EVENT DATE: 20220101
